FAERS Safety Report 4610379-3 (Version None)
Quarter: 2005Q1

REPORT INFORMATION
  Report Type: 
  Country: None (occurrence: None)
  Receive Date: 20050314
  Receipt Date: 20050301
  Transmission Date: 20050727
  Serious: Yes (Other)
  Sender: FDA-Public Use
  Company Number: HQWYE163208FEB05

PATIENT
  Age: 61 Year
  Sex: Female
  Weight: 65.83 kg

DRUGS (7)
  1. PREMARIN [Suspect]
     Indication: HYSTERECTOMY
     Dosage: SEE IMAGE
     Route: 048
     Dates: start: 19840101, end: 19840101
  2. PREMARIN [Suspect]
     Indication: HYSTERECTOMY
     Dosage: SEE IMAGE
     Route: 048
     Dates: start: 19840101, end: 19990101
  3. PREMARIN [Suspect]
     Indication: HYSTERECTOMY
     Dosage: SEE IMAGE
     Route: 048
     Dates: start: 19990101, end: 20030101
  4. PREMARIN [Suspect]
     Indication: HYSTERECTOMY
     Dosage: SEE IMAGE
     Route: 048
     Dates: start: 20030101, end: 20050128
  5. ALLEGRA [Concomitant]
  6. TETRACYCLINE [Concomitant]
  7. FLONASE [Concomitant]

REACTIONS (5)
  - EYE HAEMORRHAGE [None]
  - HEADACHE [None]
  - HEART RATE DECREASED [None]
  - HYPERTENSION [None]
  - NAUSEA [None]
